FAERS Safety Report 9808222 (Version 2)
Quarter: 2015Q4

REPORT INFORMATION
  Report Type: Report from Study
  Country: US (occurrence: US)
  Receive Date: 20140110
  Receipt Date: 20151105
  Transmission Date: 20160305
  Serious: Yes (Other)
  Sender: FDA-Public Use
  Company Number: US-ROCHE-1329056

PATIENT
  Age: 72 Year
  Sex: Female

DRUGS (15)
  1. AVASTIN [Suspect]
     Active Substance: BEVACIZUMAB
     Indication: DIABETIC RETINAL OEDEMA
     Dosage: OD
     Route: 050
     Dates: start: 20090520, end: 20090701
  2. TEKTURNA [Concomitant]
     Active Substance: ALISKIREN HEMIFUMARATE
  3. AVASTIN [Suspect]
     Active Substance: BEVACIZUMAB
     Dosage: OS
     Route: 050
     Dates: start: 20081201, end: 20090708
  4. DILTIAZEM [Concomitant]
     Active Substance: DILTIAZEM
  5. ZYRTEC [Concomitant]
     Active Substance: CETIRIZINE HYDROCHLORIDE
     Dosage: PRN
     Route: 065
  6. LUCENTIS [Suspect]
     Active Substance: RANIBIZUMAB
     Indication: DIABETIC RETINAL OEDEMA
     Dosage: BOTH EYES
     Route: 050
     Dates: start: 20100105
  7. PEPCID [Concomitant]
     Active Substance: FAMOTIDINE
     Dosage: AS REQUIRED
     Route: 065
  8. GLIMEPIRIDE. [Concomitant]
     Active Substance: GLIMEPIRIDE
  9. FISH OIL [Concomitant]
     Active Substance: FISH OIL
  10. TRADJENTA [Concomitant]
     Active Substance: LINAGLIPTIN
  11. SIMVASTATIN. [Concomitant]
     Active Substance: SIMVASTATIN
  12. BIOTIN [Concomitant]
     Active Substance: BIOTIN
  13. PRAVASTATIN [Concomitant]
     Active Substance: PRAVASTATIN\PRAVASTATIN SODIUM
  14. ADVIL [Concomitant]
     Active Substance: IBUPROFEN
     Dosage: PRN
     Route: 065
  15. NEPHROCAPS CAPSULES [Concomitant]

REACTIONS (16)
  - Lacrimation increased [Unknown]
  - Vitreous floaters [Unknown]
  - Retinal depigmentation [Unknown]
  - Corneal scar [Unknown]
  - Cystoid macular oedema [Unknown]
  - Aneurysm [Unknown]
  - Visual impairment [Unknown]
  - Iris atrophy [Unknown]
  - Off label use [Unknown]
  - Vitreous detachment [Unknown]
  - Vision blurred [Unknown]
  - Pinguecula [Unknown]
  - Retinal disorder [Unknown]
  - Metamorphopsia [Unknown]
  - Cutis laxa [Unknown]
  - Posterior capsule opacification [Unknown]

NARRATIVE: CASE EVENT DATE: 20110921
